FAERS Safety Report 23660908 (Version 1)
Quarter: 2024Q1

REPORT INFORMATION
  Report Type: Spontaneous
  Country: CN (occurrence: CN)
  Receive Date: 20240322
  Receipt Date: 20240322
  Transmission Date: 20240410
  Serious: Yes (Hospitalization)
  Sender: FDA-Public Use
  Company Number: CN-HALEON-CNCH2024APC014657

PATIENT

DRUGS (1)
  1. IBUPROFEN [Suspect]
     Active Substance: IBUPROFEN
     Indication: Analgesic therapy
     Dosage: 0.30 G, BID
     Route: 048
     Dates: start: 20240311, end: 20240314

REACTIONS (5)
  - Discomfort [Unknown]
  - Headache [Unknown]
  - Rash erythematous [Unknown]
  - Pruritus [Unknown]
  - Scratch [Unknown]

NARRATIVE: CASE EVENT DATE: 20240312
